FAERS Safety Report 5252241-1 (Version None)
Quarter: 2007Q1

REPORT INFORMATION
  Report Type: 
  Country: None (occurrence: None)
  Receive Date: 20070227
  Receipt Date: 20070227
  Transmission Date: 20070707
  Serious: Yes (Hospitalization)
  Sender: FDA-Public Use
  Company Number: None

PATIENT
  Age: 63 Year
  Sex: Female
  Weight: 56.8 kg

DRUGS (2)
  1. ERBITUX [Suspect]
     Indication: BREAST CANCER
     Dosage: 250 MG/M2  WEEKLY  IV
     Route: 042
     Dates: start: 20060705, end: 20061219
  2. CARBOPLATIN [Suspect]
     Indication: BREAST CANCER
     Dosage: AUC2   3/4 WEEKS  IV
     Route: 042
     Dates: start: 20061031, end: 20061212

REACTIONS (5)
  - CONVULSION [None]
  - METASTASES TO CENTRAL NERVOUS SYSTEM [None]
  - METASTASES TO CHEST WALL [None]
  - METASTASES TO LUNG [None]
  - MUSCULOSKELETAL CHEST PAIN [None]
